FAERS Safety Report 17199114 (Version 2)
Quarter: 2020Q1

REPORT INFORMATION
  Report Type: Spontaneous
  Country: US (occurrence: US)
  Receive Date: 20191225
  Receipt Date: 20200123
  Transmission Date: 20200409
  Serious: Yes (Death, Hospitalization, Other)
  Sender: FDA-Public Use
  Company Number: US-AMNEAL PHARMACEUTICALS-2019-AMRX-03315

PATIENT
  Age: 69 Year
  Sex: Male

DRUGS (1)
  1. RYTARY [Suspect]
     Active Substance: CARBIDOPA\LEVODOPA
     Indication: PARKINSON^S DISEASE
     Dosage: 10 CAPSULES, QD, 3 CAPSULES AT 6AM AND 6 PM THEN 2 CAPSULES 10AM AND 2PM
     Route: 048

REACTIONS (3)
  - Metastatic malignant melanoma [Fatal]
  - Metastases to central nervous system [Fatal]
  - Weight decreased [Unknown]

NARRATIVE: CASE EVENT DATE: 201912
